FAERS Safety Report 5007351-0 (Version None)
Quarter: 2006Q2

REPORT INFORMATION
  Report Type: 
  Country: None (occurrence: None)
  Receive Date: 20060519
  Receipt Date: 20060519
  Transmission Date: 20061013
  Serious: Yes (Other)
  Sender: FDA-Public Use
  Company Number: None

PATIENT
  Age: 41 Year
  Sex: Female
  Weight: 48.5349 kg

DRUGS (3)
  1. PAXIL [Suspect]
     Indication: ANXIETY
     Dosage: 12.5 MG  DAILY PO
     Route: 048
     Dates: start: 20060315, end: 20060508
  2. PAXIL [Suspect]
     Indication: DEPRESSION
     Dosage: 12.5 MG  DAILY PO
     Route: 048
     Dates: start: 20060315, end: 20060508
  3. PAXIL [Suspect]
     Indication: STRESS
     Dosage: 12.5 MG  DAILY PO
     Route: 048
     Dates: start: 20060315, end: 20060508

REACTIONS (6)
  - BALANCE DISORDER [None]
  - DRUG WITHDRAWAL SYNDROME [None]
  - MOOD SWINGS [None]
  - PARAESTHESIA [None]
  - RESTLESSNESS [None]
  - TINNITUS [None]
